FAERS Safety Report 4700555-3 (Version None)
Quarter: 2005Q2

REPORT INFORMATION
  Report Type: 
  Country: None (occurrence: None)
  Receive Date: 20050627
  Receipt Date: 20050627
  Transmission Date: 20051028
  Serious: Yes (Other)
  Sender: FDA-Public Use
  Company Number: None

PATIENT
  Sex: Female
  Weight: 76.2043 kg

DRUGS (2)
  1. TARCEVA [Suspect]
     Indication: COLORECTAL CANCER
     Dosage: 200 MG PO QD
     Route: 048
     Dates: start: 20050608
  2. TARCEVA [Suspect]
     Indication: COLORECTAL CANCER
     Dosage: 200 MG PO QD
     Route: 048
     Dates: start: 20050622

REACTIONS (1)
  - ABDOMINAL PAIN [None]
